FAERS Safety Report 23601867 (Version 1)
Quarter: 2024Q1

REPORT INFORMATION
  Report Type: Spontaneous
  Country: CH (occurrence: CH)
  Receive Date: 20240306
  Receipt Date: 20240306
  Transmission Date: 20240410
  Serious: Yes (Other)
  Sender: FDA-Public Use
  Company Number: CH-002147023-NVSC2024CH047606

PATIENT
  Sex: Male

DRUGS (1)
  1. COSENTYX [Suspect]
     Active Substance: SECUKINUMAB
     Indication: Psoriasis
     Dosage: UNK (150 MG/ 1 ML)
     Route: 058
     Dates: start: 202206

REACTIONS (3)
  - Raynaud^s phenomenon [Unknown]
  - Hypothermia [Unknown]
  - Skin discolouration [Unknown]
